FAERS Safety Report 16758979 (Version 1)
Quarter: 2019Q4

REPORT INFORMATION
  Report Type: Spontaneous
  Country: US (occurrence: US)
  Receive Date: 20190829
  Receipt Date: 20190829
  Transmission Date: 20200122
  Serious: No
  Sender: FDA-Public Use
  Company Number: None

PATIENT
  Age: 35 Year
  Sex: Female
  Weight: 67.5 kg

DRUGS (1)
  1. CAREONE TIOCONAZOLE 1 [Suspect]
     Active Substance: TIOCONAZOLE
     Indication: FUNGAL INFECTION
     Dosage: ?          OTHER STRENGTH:APPLICATORFUL;QUANTITY:1 SUPPOSITORY(IES);?
     Route: 067
     Dates: start: 20190826, end: 20190826

REACTIONS (2)
  - Genital pain [None]
  - Vulvovaginal swelling [None]

NARRATIVE: CASE EVENT DATE: 20190827
